FAERS Safety Report 19489648 (Version 1)
Quarter: 2021Q3

REPORT INFORMATION
  Report Type: Report from Study
  Country: US (occurrence: US)
  Receive Date: 20210704
  Receipt Date: 20210704
  Transmission Date: 20211014
  Serious: Yes (Other)
  Sender: FDA-Public Use
  Company Number: NVSC2021US140900

PATIENT
  Sex: Female

DRUGS (1)
  1. ENTRESTO [Suspect]
     Active Substance: SACUBITRIL\VALSARTAN
     Indication: PRODUCT USED FOR UNKNOWN INDICATION
     Dosage: UNK
     Route: 065

REACTIONS (6)
  - Neoplasm malignant [Unknown]
  - Hepatic cancer [Unknown]
  - Cardiac disorder [Unknown]
  - Breast cancer [Unknown]
  - Lung neoplasm malignant [Unknown]
  - Product dose omission issue [Unknown]
